FAERS Safety Report 9727454 (Version 1)
Quarter: 2013Q4

REPORT INFORMATION
  Report Type: Spontaneous
  Country: GU (occurrence: GU)
  Receive Date: 20131203
  Receipt Date: 20131203
  Transmission Date: 20140711
  Serious: Yes (Other)
  Sender: FDA-Public Use
  Company Number: GU-BAYER-2013-146757

PATIENT
  Age: 26 Year
  Sex: Female

DRUGS (1)
  1. GIANVI [Suspect]
     Indication: CONTRACEPTION
     Dosage: UNK
     Route: 048
     Dates: start: 20131102, end: 20131103

REACTIONS (1)
  - Migraine [Not Recovered/Not Resolved]
